FAERS Safety Report 19694473 (Version 1)
Quarter: 2021Q3

REPORT INFORMATION
  Report Type: Spontaneous
  Country: SK (occurrence: SK)
  Receive Date: 20210812
  Receipt Date: 20210812
  Transmission Date: 20211014
  Serious: Yes (Other)
  Sender: FDA-Public Use
  Company Number: SK-MYLANLABS-2021M1049818

PATIENT
  Age: 58 Year
  Sex: Male

DRUGS (4)
  1. VINCRISTINE [Suspect]
     Active Substance: VINCRISTINE
     Indication: METASTASES TO LUNG
     Dosage: FOUR CYCLES OF CHEMOTHERAPY WERE ADMINISTERED IN 3?WEEK INTERVALS
  2. ADRIAMYCIN [Suspect]
     Active Substance: DOXORUBICIN HYDROCHLORIDE
     Indication: METASTASES TO LUNG
     Dosage: FOUR CYCLES OF CHEMOTHERAPY WERE ADMINISTERED IN 3?WEEK INTERVALS
  3. PEGFILGRASTIM [Suspect]
     Active Substance: PEGFILGRASTIM
     Indication: METASTASES TO LUNG
     Dosage: FOUR CYCLES OF CHEMOTHERAPY WERE ADMINISTERED IN 3?WEEK INTERVALS
  4. IFOSFAMIDE. [Suspect]
     Active Substance: IFOSFAMIDE
     Indication: METASTASES TO LUNG
     Dosage: FOUR CYCLES OF CHEMOTHERAPY WERE ADMINISTERED IN 3?WEEK INTERVALS

REACTIONS (2)
  - Neutropenia [Unknown]
  - Leukopenia [Unknown]
